FAERS Safety Report 26185751 (Version 1)
Quarter: 2025Q4

REPORT INFORMATION
  Report Type: Spontaneous
  Country: US (occurrence: None)
  Receive Date: 20251219
  Receipt Date: 20251219
  Transmission Date: 20260117
  Serious: Yes (Hospitalization)
  Sender: FDA-CTU
  Company Number: None

PATIENT
  Age: 34 Year
  Sex: Female

DRUGS (1)
  1. XCOPRI [Suspect]
     Active Substance: CENOBAMATE
     Dosage: FREQUENCY : DAILY;
     Route: 048

REACTIONS (1)
  - Hospitalisation [None]
